FAERS Safety Report 7021953-1 (Version None)
Quarter: 2010Q3

REPORT INFORMATION
  Report Type: 
  Country: None (occurrence: None)
  Receive Date: 20100930
  Receipt Date: 20100921
  Transmission Date: 20110219
  Serious: Yes (Other)
  Sender: FDA-Public Use
  Company Number: US-BAYER-201031862NA

PATIENT
  Age: 27 Year
  Sex: Female

DRUGS (2)
  1. MIRENA [Suspect]
     Indication: CONTRACEPTION
     Dosage: CONTINUOUS. INSERTED POST PARTUM
     Route: 015
     Dates: start: 20100823, end: 20100823
  2. MIRENA [Suspect]
     Dosage: CONTINUOUS. INSERTED AFTER FIRST CHILD
     Route: 015

REACTIONS (3)
  - ABDOMINAL PAIN [None]
  - DEVICE DIFFICULT TO USE [None]
  - UTERINE PERFORATION [None]
